FAERS Safety Report 7980470-2 (Version None)
Quarter: 2011Q4

REPORT INFORMATION
  Report Type: 
  Country: None (occurrence: None)
  Receive Date: 20111214
  Receipt Date: 20111212
  Transmission Date: 20120403
  Serious: Yes (Other)
  Sender: FDA-Public Use
  Company Number: US-GLAXOSMITHKLINE-A0957701A

PATIENT
  Age: 73 Year
  Sex: Female

DRUGS (4)
  1. DILTIAZEM CD [Concomitant]
  2. WARFARIN SODIUM [Concomitant]
  3. PROPAFENONE HYDROCHLORIDE [Suspect]
     Indication: ATRIAL FIBRILLATION
     Dosage: 425MG PER DAY
     Route: 048
     Dates: start: 20110901, end: 20111001
  4. PROPAFENONE HYDROCHLORIDE [Suspect]
     Dosage: 3TAB THREE TIMES PER DAY
     Route: 048
     Dates: start: 20111102

REACTIONS (2)
  - CHEST PAIN [None]
  - ATRIAL FIBRILLATION [None]
